FAERS Safety Report 5600205-8 (Version None)
Quarter: 2008Q1

REPORT INFORMATION
  Report Type: 
  Country: None (occurrence: None)
  Receive Date: 20080123
  Receipt Date: 20080118
  Transmission Date: 20080703
  Serious: Yes (Hospitalization, Other)
  Sender: FDA-Public Use
  Company Number: FR-BRISTOL-MYERS SQUIBB COMPANY-14008569

PATIENT
  Age: 52 Year
  Sex: Female
  Weight: 68 kg

DRUGS (4)
  1. ORENCIA [Suspect]
     Indication: RHEUMATOID ARTHRITIS
     Route: 042
  2. ARAVA [Concomitant]
     Route: 048
     Dates: start: 20060101
  3. CONTRAMAL [Concomitant]
     Route: 048
     Dates: start: 20060101
  4. IBUPROFEN [Concomitant]
     Dates: start: 20060101

REACTIONS (5)
  - BACK PAIN [None]
  - EYELID OEDEMA [None]
  - HYPERSENSITIVITY [None]
  - MALAISE [None]
  - SINUS TACHYCARDIA [None]
